FAERS Safety Report 19858203 (Version 1)
Quarter: 2021Q3

REPORT INFORMATION
  Report Type: Other
  Country: CN (occurrence: CN)
  Receive Date: 20210921
  Receipt Date: 20210921
  Transmission Date: 20211014
  Serious: Yes (Other)
  Sender: FDA-Public Use
  Company Number: CN-ROCHE-2911887

PATIENT

DRUGS (2)
  1. BEVACIZUMAB. [Suspect]
     Active Substance: BEVACIZUMAB
     Indication: HEPATOCELLULAR CARCINOMA
  2. LIPIODOL [Concomitant]
     Active Substance: ETHIODIZED OIL

REACTIONS (6)
  - Hypertension [Unknown]
  - Hyperbilirubinaemia [Unknown]
  - Melaena [Unknown]
  - Anaphylactic reaction [Unknown]
  - Embolism [Unknown]
  - Stomatitis [Unknown]
